FAERS Safety Report 6976120-4 (Version None)
Quarter: 2010Q3

REPORT INFORMATION
  Report Type: 
  Country: None (occurrence: None)
  Receive Date: 20100910
  Receipt Date: 20100826
  Transmission Date: 20110219
  Serious: Yes (Death)
  Sender: FDA-Public Use
  Company Number: US-SANOFI-AVENTIS-2010SA051518

PATIENT
  Age: 44 Year
  Sex: Male
  Weight: 119 kg

DRUGS (5)
  1. LOVENOX [Suspect]
     Route: 065
     Dates: start: 20100101, end: 20100701
  2. MICARDIS [Concomitant]
  3. ZYLOPRIM [Concomitant]
  4. LIPITOR [Concomitant]
  5. ASPIRIN [Concomitant]

REACTIONS (2)
  - DEEP VEIN THROMBOSIS [None]
  - PULMONARY EMBOLISM [None]
